FAERS Safety Report 7957591 (Version 5)
Quarter: 2012Q4

REPORT INFORMATION
  Report Type: 
  Country: US (occurrence: US)
  Receive Date: 20110524
  Receipt Date: 20121121
  Transmission Date: 20130627
  Serious: Yes (Hospitalization)
  Sender: FDA-Public Use
  Company Number: US-ACTELION-A-US2010-40140

PATIENT
  Age: 63 Year
  Sex: Female

DRUGS (7)
  1. TRACLEER [Suspect]
     Indication: PULMONARY ARTERIAL HYPERTENSION
     Dosage: UNK
     Route: 048
     Dates: start: 20070504, end: 20091019
  2. TRACLEER [Suspect]
     Dosage: UNK
     Route: 055
  3. VENTAVIS [Suspect]
     Indication: PULMONARY ARTERIAL HYPERTENSION
     Dosage: UNK
     Route: 055
  4. FENTANYL [Suspect]
  5. REVATIO [Concomitant]
  6. COUMADIN [Concomitant]
  7. SILDENAFIL [Concomitant]
     Indication: PULMONARY ARTERIAL HYPERTENSION

REACTIONS (9)
  - Cellulitis [Unknown]
  - Pulmonary arterial hypertension [Unknown]
  - Syncope [Unknown]
  - Condition aggravated [Unknown]
  - Tooth infection [Unknown]
  - Cough [Unknown]
  - Dizziness [Unknown]
  - Hypersensitivity [Unknown]
  - Presyncope [Unknown]
